FAERS Safety Report 4814141-8 (Version None)
Quarter: 2005Q4

REPORT INFORMATION
  Report Type: 
  Country: None (occurrence: None)
  Receive Date: 20051028
  Receipt Date: 20050706
  Transmission Date: 20060501
  Serious: Yes (Other)
  Sender: FDA-Public Use
  Company Number: US-GLAXOSMITHKLINE-A0565298A

PATIENT
  Age: 71 Year
  Sex: Female
  Weight: 68.2 kg

DRUGS (11)
  1. ADVAIR DISKUS 100/50 [Suspect]
     Indication: ASTHMA
     Dosage: 1PUFF TWICE PER DAY
     Route: 055
     Dates: start: 20011201
  2. NEURONTIN [Concomitant]
  3. ASPIRIN [Concomitant]
  4. SLO-BID [Concomitant]
  5. VITAMINS [Concomitant]
  6. MIACALCIN [Concomitant]
  7. ORAL STEROIDS [Concomitant]
  8. LUMIGAN [Concomitant]
  9. NASONEX [Concomitant]
  10. HISTUSSIN [Concomitant]
  11. CO 24 [Concomitant]

REACTIONS (1)
  - OPEN ANGLE GLAUCOMA [None]
